FAERS Safety Report 6166366-X (Version None)
Quarter: 2009Q2

REPORT INFORMATION
  Report Type: 
  Country: None (occurrence: None)
  Receive Date: 20090424
  Receipt Date: 20081112
  Transmission Date: 20091009
  Serious: No
  Sender: FDA-Public Use
  Company Number: A0756001A

PATIENT
  Age: 57 Year
  Sex: Female

DRUGS (5)
  1. DEXEDRINE [Suspect]
     Indication: NARCOLEPSY
     Dosage: 15MG SINGLE DOSE
     Route: 048
     Dates: start: 20080301, end: 20080301
  2. ESTROGENIC SUBSTANCE [Concomitant]
  3. ZOLOFT [Concomitant]
  4. SYNTHROID [Concomitant]
  5. XANAX [Concomitant]

REACTIONS (2)
  - FEELING JITTERY [None]
  - THERAPEUTIC RESPONSE UNEXPECTED [None]
